FAERS Safety Report 7669445-0 (Version None)
Quarter: 2011Q3

REPORT INFORMATION
  Report Type: 
  Country: None (occurrence: None)
  Receive Date: 20110808
  Receipt Date: 20110801
  Transmission Date: 20111222
  Serious: Yes (Hospitalization)
  Sender: FDA-Public Use
  Company Number: TN-ROCHE-794906

PATIENT
  Age: 45 Year
  Sex: Female

DRUGS (5)
  1. NAPROXEN [Suspect]
     Dosage: TWICE DAILY
     Route: 065
     Dates: start: 20100901
  2. NOMEGESTROL [Concomitant]
     Dates: start: 20100501
  3. NOMEGESTROL [Concomitant]
     Dates: end: 20100907
  4. NAPROXEN [Suspect]
     Indication: ARTHRALGIA
     Dosage: IRREGULARLY TAKEN.
     Route: 065
     Dates: start: 20000101
  5. NAPROXEN [Suspect]
     Route: 065
     Dates: end: 20101020

REACTIONS (1)
  - LEUKOCYTOCLASTIC VASCULITIS [None]
